FAERS Safety Report 7177217-9 (Version None)
Quarter: 2010Q4

REPORT INFORMATION
  Report Type: 
  Country: None (occurrence: None)
  Receive Date: 20101220
  Receipt Date: 20101216
  Transmission Date: 20110411
  Serious: Yes (Other)
  Sender: FDA-Public Use
  Company Number: SE-ROCHE-745908

PATIENT
  Sex: Female

DRUGS (1)
  1. HERCEPTIN [Suspect]
     Dosage: DOSE, FORM, FREQUENCY, ROUTE: NOT REPORTED.
     Route: 065

REACTIONS (1)
  - PERICARDITIS [None]
